FAERS Safety Report 8757791 (Version 1)
Quarter: 2012Q4

REPORT INFORMATION
  Report Type: 
  Country: FR (occurrence: FR)
  Receive Date: 20120830
  Receipt Date: 20120830
  Transmission Date: 20130627
  Serious: Yes (Hospitalization)
  Sender: FDA-Public Use
  Company Number: FR-EISAI INC-E7389-02886-SPO-FR

PATIENT
  Age: 86 Year
  Sex: Female

DRUGS (2)
  1. HALAVEN [Suspect]
     Indication: BREAST CANCER METASTATIC
     Dates: start: 20120607, end: 20120614
  2. HALAVEN [Suspect]
     Dosage: UNKNOWN
     Dates: start: 20120716

REACTIONS (8)
  - Chest pain [Recovered/Resolved]
  - Hypotension [Recovered/Resolved]
  - Abdominal pain [Recovered/Resolved]
  - Vomiting [Recovered/Resolved]
  - Diarrhoea [Recovered/Resolved]
  - Atrioventricular block complete [None]
  - Coronary artery stenosis [None]
  - Coronary artery occlusion [None]
